FAERS Safety Report 9311843 (Version 2)
Quarter: 2015Q3

REPORT INFORMATION
  Report Type: Report from Study
  Country: CA (occurrence: CA)
  Receive Date: 20130528
  Receipt Date: 20150915
  Transmission Date: 20151125
  Serious: Yes (Other)
  Sender: FDA-Public Use
  Company Number: PHHO2013CA006832

PATIENT
  Age: 28 Year
  Sex: Female
  Weight: 80.59 kg

DRUGS (9)
  1. SOM230 [Suspect]
     Active Substance: PASIREOTIDE
     Indication: PITUITARY-DEPENDENT CUSHING^S SYNDROME
     Dosage: 600 UG, BID
     Dates: start: 20120621, end: 20130129
  2. L-THYROXIN [Concomitant]
     Active Substance: LEVOTHYROXINE SODIUM
     Indication: SECONDARY HYPOTHYROIDISM
     Dosage: 20 MG, QD
     Route: 065
     Dates: start: 20090113
  3. TOPAMAX [Concomitant]
     Active Substance: TOPIRAMATE
     Indication: BACK PAIN
     Route: 065
     Dates: start: 20120911
  4. MORPHINE [Concomitant]
     Active Substance: MORPHINE
     Indication: BACK PAIN
     Route: 065
     Dates: start: 20120911
  5. CALCIUM + VIT D [Concomitant]
     Active Substance: CALCIUM\VITAMIN D
     Indication: OSTEOPOROSIS
     Route: 065
     Dates: start: 20070320
  6. FOSAMAX [Concomitant]
     Active Substance: ALENDRONATE SODIUM
     Indication: OSTEOPOROSIS
     Route: 065
     Dates: start: 20070320
  7. CABERGOLINE. [Concomitant]
     Active Substance: CABERGOLINE
     Indication: CUSHING^S SYNDROME
     Dosage: 0.5 MG
     Route: 065
     Dates: start: 20120726
  8. PANTOPRAZOLE [Concomitant]
     Active Substance: PANTOPRAZOLE SODIUM
     Indication: GASTROOESOPHAGEAL REFLUX DISEASE
     Route: 065
  9. DESOGESTREL AND ETHINYL ESTRADIOL [Concomitant]
     Active Substance: DESOGESTREL\ETHINYL ESTRADIOL
     Indication: AMENORRHOEA
     Route: 065
     Dates: start: 20080408

REACTIONS (6)
  - Diabetes mellitus [Recovering/Resolving]
  - Cellulitis staphylococcal [Recovered/Resolved]
  - Dizziness [Recovered/Resolved]
  - Vision blurred [Recovered/Resolved]
  - Gamma-glutamyltransferase increased [Unknown]
  - Headache [Recovered/Resolved]

NARRATIVE: CASE EVENT DATE: 20120621
